FAERS Safety Report 6516739-8 (Version None)
Quarter: 2009Q4

REPORT INFORMATION
  Report Type: 
  Country: None (occurrence: None)
  Receive Date: 20091223
  Receipt Date: 20091221
  Transmission Date: 20100525
  Serious: Yes (Hospitalization)
  Sender: FDA-Public Use
  Company Number: CHPA2009US23866

PATIENT
  Age: 18 Year
  Sex: Female
  Weight: 46.712 kg

DRUGS (1)
  1. EXCEDRIN (MIGRAINE) [Suspect]
     Indication: HEADACHE
     Dosage: 2 DF, ONCE/SINGLE
     Route: 048
     Dates: start: 20091213, end: 20091213

REACTIONS (5)
  - APHASIA [None]
  - DYSKINESIA [None]
  - DYSTONIA [None]
  - MOVEMENT DISORDER [None]
  - SINUSITIS [None]
